FAERS Safety Report 6838232-5 (Version None)
Quarter: 2010Q3

REPORT INFORMATION
  Report Type: 
  Country: None (occurrence: None)
  Receive Date: 20100713
  Receipt Date: 20070607
  Transmission Date: 20110219
  Serious: No
  Sender: FDA-Public Use
  Company Number: US-PFIZER INC-2007048368

PATIENT
  Sex: Female
  Weight: 71 kg

DRUGS (3)
  1. CHANTIX [Suspect]
     Indication: SMOKING CESSATION THERAPY
     Dates: start: 20070526
  2. VICODIN [Concomitant]
  3. XANAX [Concomitant]

REACTIONS (1)
  - CHEST PAIN [None]
